FAERS Safety Report 5207146-9 (Version None)
Quarter: 2007Q1

REPORT INFORMATION
  Report Type: 
  Country: None (occurrence: None)
  Receive Date: 20070110
  Receipt Date: 20070104
  Transmission Date: 20070707
  Serious: Yes (Death, Other)
  Sender: FDA-Public Use
  Company Number: 163-21880-06100620

PATIENT
  Age: 50 Year
  Sex: Male

DRUGS (9)
  1. REVLIMID [Suspect]
     Indication: MULTIPLE MYELOMA
     Dosage: 25 MG, 1 IN 1 D, ORAL
     Route: 048
     Dates: start: 20060825, end: 20061109
  2. DEXAMETHASONE TAB [Suspect]
     Indication: MULTIPLE MYELOMA
     Dosage: 40 MG, 4 DAYS EACH MONTH,
  3. OXYCONTIN [Concomitant]
  4. OXYCODONE HCL [Concomitant]
  5. NEURONTIN [Concomitant]
  6. BACTRIM DS [Concomitant]
  7. COUMADIN [Concomitant]
  8. MAGNESIUM GLUCONATE (MAGNESIUM GLUCONATE) [Concomitant]
  9. FAMVIR [Concomitant]

REACTIONS (5)
  - FATIGUE [None]
  - MALIGNANT NEOPLASM PROGRESSION [None]
  - MULTIPLE MYELOMA [None]
  - NEUTROPENIA [None]
  - THROMBOCYTOPENIA [None]
